FAERS Safety Report 9893779 (Version 2)
Quarter: 2014Q1

REPORT INFORMATION
  Report Type: Spontaneous
  Country: CA (occurrence: CA)
  Receive Date: 20140213
  Receipt Date: 20140213
  Transmission Date: 20141002
  Serious: Yes (Death)
  Sender: FDA-Public Use
  Company Number: CA-PFIZER INC-2014033377

PATIENT
  Age: 48 Year
  Sex: Female

DRUGS (1)
  1. CABERGOLINE [Suspect]
     Dosage: UNK

REACTIONS (2)
  - Lung neoplasm malignant [Fatal]
  - Drug intolerance [Unknown]
